FAERS Safety Report 23217877 (Version 2)
Quarter: 2023Q4

REPORT INFORMATION
  Report Type: Other
  Country: US (occurrence: US)
  Receive Date: 20231122
  Receipt Date: 20231130
  Transmission Date: 20240110
  Serious: Yes (Hospitalization)
  Sender: FDA-Public Use
  Company Number: US-ALVOGEN-2023092599

PATIENT
  Age: 69 Year
  Sex: Female

DRUGS (4)
  1. METHOTREXATE [Suspect]
     Active Substance: METHOTREXATE
     Indication: Pemphigoid
     Dosage: FOR SIX WEEKS BEFORE ?DISPLAYING  SYMPTOMS
  2. PREDNISONE [Concomitant]
     Active Substance: PREDNISONE
     Indication: Pemphigoid
     Dosage: SLOW PREDNISONE TAPER FOR 6 WEEKS, LESIONS WOULD FLARE WHEN DOSE WAS DECREASED TO 20MG DAILY.
  3. PREDNISONE [Concomitant]
     Active Substance: PREDNISONE
     Indication: Pemphigoid
     Dosage: THE  PATIENT ?CONTINUED PREDNISONE TREATMENT AT 20MG DAILY.
  4. PREDNISONE [Concomitant]
     Active Substance: PREDNISONE
     Indication: Pemphigoid
     Dosage: PREDNISONE WAS TAPERED OVER ?FIVE MONTHS WITH NO RECURRENCE OF BULLOUS LESIONS.

REACTIONS (2)
  - Hypersensitivity pneumonitis [Recovering/Resolving]
  - Off label use [Unknown]
